FAERS Safety Report 10744108 (Version 1)
Quarter: 2015Q1

REPORT INFORMATION
  Report Type: Spontaneous
  Country: US (occurrence: None)
  Receive Date: 20150123
  Receipt Date: 20150123
  Transmission Date: 20150721
  Serious: Yes (Life-Threatening, Hospitalization, Disabling, Other)
  Sender: FDA-Public Use
  Company Number: None

PATIENT
  Age: 54 Year
  Sex: Female
  Weight: 58.97 kg

DRUGS (1)
  1. TASIGNA [Suspect]
     Active Substance: NILOTINIB
     Indication: CHRONIC MYELOID LEUKAEMIA
     Dosage: 2 CAPSULES
     Route: 048
     Dates: start: 20140221, end: 20141128

REACTIONS (6)
  - Electrocardiogram QT prolonged [None]
  - Cardiac arrest [None]
  - Unresponsive to stimuli [None]
  - Coronary artery occlusion [None]
  - Respiratory arrest [None]
  - Pneumonia aspiration [None]

NARRATIVE: CASE EVENT DATE: 20141128
